FAERS Safety Report 8160357-5 (Version None)
Quarter: 2012Q1

REPORT INFORMATION
  Report Type: 
  Country: None (occurrence: None)
  Receive Date: 20120223
  Receipt Date: 20120221
  Transmission Date: 20120608
  Serious: Yes (Other)
  Sender: FDA-Public Use
  Company Number: DE-BAYER-2012-014902

PATIENT
  Age: 81 Year
  Sex: Female
  Weight: 55 kg

DRUGS (6)
  1. MICARDIS [Concomitant]
     Indication: CORONARY ARTERY DISEASE
  2. METOPROLOL [Concomitant]
     Indication: ATRIAL FIBRILLATION
     Dosage: 50 MG, UNK
  3. XARELTO 15MG [Interacting]
     Indication: ATRIAL FIBRILLATION
     Dosage: 15 MG, QD
     Dates: start: 20120206, end: 20120217
  4. ASPIRIN [Suspect]
     Dosage: UNK
     Dates: start: 20120206
  5. MICARDIS [Concomitant]
     Indication: ATRIAL FIBRILLATION
     Dosage: 80 MG, UNK
  6. METOPROLOL [Concomitant]
     Indication: CORONARY ARTERY DISEASE

REACTIONS (2)
  - INTESTINAL HAEMORRHAGE [None]
  - MELAENA [None]
